FAERS Safety Report 6169124-5 (Version None)
Quarter: 2009Q2

REPORT INFORMATION
  Report Type: 
  Country: None (occurrence: None)
  Receive Date: 20090424
  Receipt Date: 20081125
  Transmission Date: 20091009
  Serious: No
  Sender: FDA-Public Use
  Company Number: ALL1-2008-03419

PATIENT
  Age: 7 Year
  Sex: Male
  Weight: 24.5 kg

DRUGS (2)
  1. VYVANSE [Suspect]
     Indication: ATTENTION DEFICIT/HYPERACTIVITY DISORDER
     Dosage: 20 MG, 1X/DAY:QD, ORAL ; HALF OF A 20 MG CAPSULE, 1X/DAY:QD, ORAL
     Route: 048
     Dates: start: 20081122, end: 20081124
  2. VYVANSE [Suspect]
     Indication: ATTENTION DEFICIT/HYPERACTIVITY DISORDER
     Dosage: 20 MG, 1X/DAY:QD, ORAL ; HALF OF A 20 MG CAPSULE, 1X/DAY:QD, ORAL
     Route: 048
     Dates: start: 20081125

REACTIONS (5)
  - AGITATION [None]
  - DECREASED APPETITE [None]
  - DYSPHEMIA [None]
  - SOCIAL AVOIDANT BEHAVIOUR [None]
  - SOMNOLENCE [None]
